FAERS Safety Report 13409563 (Version 3)
Quarter: 2019Q3

REPORT INFORMATION
  Report Type: Spontaneous
  Country: US (occurrence: US)
  Receive Date: 20170406
  Receipt Date: 20190726
  Transmission Date: 20191004
  Serious: No
  Sender: FDA-Public Use
  Company Number: US-JNJFOC-20170127383

PATIENT
  Age: 22 Year
  Sex: Male

DRUGS (3)
  1. RISPERDAL [Suspect]
     Active Substance: RISPERIDONE
     Indication: DISTURBANCE IN SOCIAL BEHAVIOUR
  2. RISPERDAL [Suspect]
     Active Substance: RISPERIDONE
     Indication: OPPOSITIONAL DEFIANT DISORDER
     Dosage: VARYING DOSES OF 0.5 MG AND 1 MG
     Route: 048
     Dates: start: 20110929, end: 20120824
  3. SEROQUEL [Suspect]
     Active Substance: QUETIAPINE FUMARATE
     Indication: SLEEP DISORDER
     Route: 065
     Dates: start: 2011, end: 2012

REACTIONS (4)
  - Emotional distress [Unknown]
  - Gynaecomastia [Unknown]
  - Weight increased [Unknown]
  - Therapy cessation [Unknown]

NARRATIVE: CASE EVENT DATE: 20180802
